FAERS Safety Report 6290931-2 (Version None)
Quarter: 2009Q3

REPORT INFORMATION
  Report Type: 
  Country: None (occurrence: None)
  Receive Date: 20090728
  Receipt Date: 20090728
  Transmission Date: 20100115
  Serious: No
  Sender: FDA-Public Use
  Company Number: None

PATIENT
  Age: 52 Year
  Sex: Female
  Weight: 45.3597 kg

DRUGS (1)
  1. ZICAM NASAL GEL [Suspect]
     Indication: NASOPHARYNGITIS
     Dosage: SQUIRT IN EACH NOSTRIL, ONSET OF A COLD; LESS THAN A YEAR

REACTIONS (2)
  - ANOSMIA [None]
  - BURNING SENSATION [None]
